FAERS Safety Report 21159227 (Version 2)
Quarter: 2022Q3

REPORT INFORMATION
  Report Type: Other
  Country: JP (occurrence: None)
  Receive Date: 20220802
  Receipt Date: 20220908
  Transmission Date: 20221026
  Serious: Yes (Other)
  Sender: FDA-Public Use
  Company Number: JP-ROCHE-3151641

PATIENT
  Age: 91 Year
  Sex: Male
  Weight: 70 kg

DRUGS (7)
  1. RITUXIMAB [Suspect]
     Active Substance: RITUXIMAB
     Indication: Diffuse large B-cell lymphoma refractory
     Route: 041
     Dates: start: 20210630, end: 20210630
  2. BENDAMUSTINE HYDROCHLORIDE [Suspect]
     Active Substance: BENDAMUSTINE HYDROCHLORIDE
     Indication: Diffuse large B-cell lymphoma refractory
     Route: 042
     Dates: start: 20210701, end: 20210810
  3. POLATUZUMAB VEDOTIN [Concomitant]
     Active Substance: POLATUZUMAB VEDOTIN
     Route: 042
     Dates: start: 20210701, end: 20210701
  4. POLATUZUMAB VEDOTIN [Concomitant]
     Active Substance: POLATUZUMAB VEDOTIN
     Route: 042
     Dates: start: 20210720, end: 20210720
  5. POLATUZUMAB VEDOTIN [Concomitant]
     Active Substance: POLATUZUMAB VEDOTIN
     Route: 042
     Dates: start: 20210810, end: 20210810
  6. SULFAMETHOXAZOLE\TRIMETHOPRIM [Concomitant]
     Active Substance: SULFAMETHOXAZOLE\TRIMETHOPRIM
     Route: 048
     Dates: start: 20210831
  7. ISCOTIN [Concomitant]
     Active Substance: ISONIAZID
     Route: 065
     Dates: start: 20210831

REACTIONS (1)
  - Cytomegalovirus enterocolitis [Not Recovered/Not Resolved]

NARRATIVE: CASE EVENT DATE: 20210811
